FAERS Safety Report 9274812 (Version 3)
Quarter: 2013Q4

REPORT INFORMATION
  Report Type: Spontaneous
  Country: US (occurrence: US)
  Receive Date: 20130507
  Receipt Date: 20131008
  Transmission Date: 20140711
  Serious: Yes (Death, Hospitalization)
  Sender: FDA-Public Use
  Company Number: US-B.I. PHARMACEUTICALS,INC./RIDGEFIELD-2013-BI-12344BP

PATIENT
  Age: 73 Year
  Sex: Male
  Weight: 112.04 kg

DRUGS (10)
  1. PRADAXA [Suspect]
     Indication: ANTICOAGULANT THERAPY
     Dosage: 300 MG
     Route: 048
     Dates: start: 20110509, end: 20111212
  2. PRADAXA [Suspect]
     Indication: ATRIAL FIBRILLATION
  3. BABY ASPIRIN [Concomitant]
     Dosage: 81 MG
     Route: 048
  4. MULTIVITAMIN [Concomitant]
     Route: 048
  5. GLIMEPIRIDE [Concomitant]
     Indication: TYPE 2 DIABETES MELLITUS
     Dosage: 4 MG
     Route: 048
  6. SIMVASTATIN [Concomitant]
     Indication: HYPERLIPIDAEMIA
     Dosage: 20 MG
     Route: 048
  7. DIGOXIN [Concomitant]
     Indication: ATRIAL FIBRILLATION
     Dosage: 125 MCG
     Route: 048
  8. METOPROLOL [Concomitant]
     Indication: HYPERTENSION
     Dosage: 100 MG
     Route: 048
  9. METOPROLOL [Concomitant]
     Indication: ATRIAL FIBRILLATION
  10. OMEPRAZOLE [Concomitant]
     Dosage: 20 MG
     Route: 048

REACTIONS (2)
  - Cerebral haemorrhage [Fatal]
  - Cerebral infarction [Fatal]
